FAERS Safety Report 8436239-8 (Version None)
Quarter: 2012Q2

REPORT INFORMATION
  Report Type: 
  Country: None (occurrence: None)
  Receive Date: 20120614
  Receipt Date: 20120606
  Transmission Date: 20120825
  Serious: Yes (Hospitalization, Other)
  Sender: FDA-Public Use
  Company Number: CA-ASTRAZENECA-2012SE38064

PATIENT
  Age: 78 Year
  Sex: Male

DRUGS (3)
  1. PMS-ATENOLOL [Concomitant]
  2. CRESTOR [Suspect]
     Route: 048
     Dates: start: 20100601
  3. ASPIRIN [Concomitant]
     Route: 048

REACTIONS (3)
  - MYALGIA [None]
  - ARTHRALGIA [None]
  - BLADDER CANCER [None]
